FAERS Safety Report 11178930 (Version 1)
Quarter: 2015Q2

REPORT INFORMATION
  Report Type: Report from Study
  Country: IT (occurrence: None)
  Receive Date: 20150429
  Receipt Date: 20150429
  Transmission Date: 20150821
  Serious: Yes (Other)
  Sender: FDA-Public Use
  Company Number: IT-KEDRION-2015001KB046

PATIENT
  Age: 8 Year
  Sex: Female

DRUGS (1)
  1. KEDRION HUMAN PLASMINOGEN EYE DROP [Suspect]
     Active Substance: INVESTIGATIONAL PRODUCT
     Indication: LIGNEOUS CONJUNCTIVITIS
     Route: 031
     Dates: start: 20140113

REACTIONS (1)
  - Drug specific antibody present [None]

NARRATIVE: CASE EVENT DATE: 20140312
